FAERS Safety Report 8153469-3 (Version None)
Quarter: 2012Q1

REPORT INFORMATION
  Report Type: 
  Country: None (occurrence: None)
  Receive Date: 20120221
  Receipt Date: 20120217
  Transmission Date: 20120608
  Serious: Yes (Life-Threatening)
  Sender: FDA-Public Use
  Company Number: BR-ROCHE-1029221

PATIENT
  Age: 84 Year
  Sex: Female
  Weight: 85 kg

DRUGS (10)
  1. PLAVIX [Concomitant]
  2. JANUVIA [Concomitant]
  3. LEXAPRO [Concomitant]
  4. VASOGARD [Concomitant]
  5. CALCITRIOL [Concomitant]
  6. LEVOTHYROXINE SODIUM [Concomitant]
  7. REPAGLINIDE [Concomitant]
  8. EPOETIN ALFA [Concomitant]
  9. LIPITOR [Concomitant]
  10. ROCEPHIN [Suspect]
     Indication: PANCREATITIS
     Route: 042
     Dates: start: 20120109, end: 20120109

REACTIONS (2)
  - ANAPHYLACTIC SHOCK [None]
  - CARDIO-RESPIRATORY ARREST [None]
